FAERS Safety Report 10206297 (Version 1)
Quarter: 2014Q2

REPORT INFORMATION
  Report Type: Spontaneous
  Country: US (occurrence: None)
  Receive Date: 20140527
  Receipt Date: 20140527
  Transmission Date: 20141212
  Serious: No
  Sender: FDA-Public Use
  Company Number: None

PATIENT
  Age: 50 Year
  Sex: Female
  Weight: 52.16 kg

DRUGS (4)
  1. HYDROCODONE 10/325 [Suspect]
     Indication: ARTHRITIS
     Dosage: 2 PILLS, AS NEEDED, TAKEN BY MOUTH
     Route: 048
     Dates: start: 20140520, end: 20140521
  2. HYDROCODONE 10/325 [Suspect]
     Indication: BACK PAIN
     Dosage: 2 PILLS, AS NEEDED, TAKEN BY MOUTH
     Route: 048
     Dates: start: 20140520, end: 20140521
  3. HYDROCODONE 10/325 [Suspect]
     Indication: PAIN IN EXTREMITY
     Dosage: 2 PILLS, AS NEEDED, TAKEN BY MOUTH
     Route: 048
     Dates: start: 20140520, end: 20140521
  4. HYDROCODONE 10/325 [Suspect]
     Indication: NECK PAIN
     Dosage: 2 PILLS, AS NEEDED, TAKEN BY MOUTH
     Route: 048
     Dates: start: 20140520, end: 20140521

REACTIONS (3)
  - Malaise [None]
  - Insomnia [None]
  - Product substitution issue [None]
